FAERS Safety Report 22249987 (Version 2)
Quarter: 2023Q2

REPORT INFORMATION
  Report Type: Report from Study
  Country: CA (occurrence: None)
  Receive Date: 20230425
  Receipt Date: 20230607
  Transmission Date: 20230721
  Serious: Yes (Death)
  Sender: FDA-Public Use
  Company Number: CA-Merck Healthcare KGaA-9398518

PATIENT
  Sex: Female

DRUGS (2)
  1. MAVENCLAD [Suspect]
     Active Substance: CLADRIBINE
     Indication: Multiple sclerosis
     Dosage: YEAR ONE WEEK ONE THERAPY: 2 DOSAGE FORM ON DAY 1 AND 1 DOSAGE FORM ON DAYS 2 TO 5.
     Route: 048
     Dates: start: 20220324
  2. MAVENCLAD [Suspect]
     Active Substance: CLADRIBINE
     Dosage: YEAR ONE WEEK FIVE THERAPY: 2 DOSAGE FORM ON DAY 1 AND 1 DOSAGE FORM ON DAYS 2 TO 5.
     Route: 048

REACTIONS (1)
  - Death [Fatal]
